FAERS Safety Report 4987456-0 (Version None)
Quarter: 2006Q2

REPORT INFORMATION
  Report Type: 
  Country: None (occurrence: None)
  Receive Date: 20060501
  Receipt Date: 20051004
  Transmission Date: 20061013
  Serious: Yes (Hospitalization)
  Sender: FDA-Public Use
  Company Number: US-MERCK-0510USA03969

PATIENT
  Age: 66 Year
  Sex: Male
  Weight: 98 kg

DRUGS (9)
  1. VIOXX [Suspect]
     Indication: NECK PAIN
     Route: 048
     Dates: start: 20010401, end: 20020305
  2. VIOXX [Suspect]
     Route: 048
     Dates: start: 20020328, end: 20040304
  3. VIOXX [Suspect]
     Route: 048
     Dates: start: 20010401, end: 20020305
  4. VIOXX [Suspect]
     Indication: MUSCULOSKELETAL STIFFNESS
     Route: 048
     Dates: start: 20010401, end: 20020305
  5. VIOXX [Suspect]
     Route: 048
     Dates: start: 20020328, end: 20040304
  6. VIOXX [Suspect]
     Route: 048
     Dates: start: 20010401, end: 20020305
  7. ZESTORETIC [Concomitant]
     Route: 065
  8. ASPIRIN [Concomitant]
     Route: 065
  9. TAGAMET [Concomitant]
     Route: 065

REACTIONS (8)
  - ATRIAL FIBRILLATION [None]
  - CARDIAC DISORDER [None]
  - CARPAL TUNNEL SYNDROME [None]
  - CEREBROVASCULAR ACCIDENT [None]
  - DERMATITIS [None]
  - HYPERLIPIDAEMIA [None]
  - OSTEOARTHRITIS [None]
  - RECTAL HAEMORRHAGE [None]
